FAERS Safety Report 14123426 (Version 1)
Quarter: 2017Q4

REPORT INFORMATION
  Report Type: Spontaneous
  Country: US (occurrence: US)
  Receive Date: 20171025
  Receipt Date: 20171025
  Transmission Date: 20180321
  Serious: Yes (Other)
  Sender: FDA-Public Use
  Company Number: None

PATIENT
  Sex: Female
  Weight: 36 kg

DRUGS (3)
  1. SINGULAIR [Suspect]
     Active Substance: MONTELUKAST SODIUM
     Indication: PROPHYLAXIS
     Route: 048
     Dates: start: 20160901, end: 20161125
  2. DAILY CHILDREN^S GUMMY VITAMIN [Concomitant]
  3. SINGULAIR [Suspect]
     Active Substance: MONTELUKAST SODIUM
     Indication: URTICARIA
     Route: 048
     Dates: start: 20160901, end: 20161125

REACTIONS (5)
  - Aggression [None]
  - Suicidal ideation [None]
  - Abnormal behaviour [None]
  - Emotional disorder [None]
  - Condition aggravated [None]

NARRATIVE: CASE EVENT DATE: 20160901
